FAERS Safety Report 7026120 (Version 4)
Quarter: 2012Q4

REPORT INFORMATION
  Report Type: Report from Study
  Country: DE (occurrence: DE)
  Receive Date: 20090617
  Receipt Date: 20121226
  Transmission Date: 20130627
  Serious: Yes (Hospitalization)
  Sender: FDA-Public Use
  Company Number: DE-ABBOTT-09P-062-0578764-00

PATIENT
  Age: 72 Year
  Sex: Female
  Weight: 80 kg

DRUGS (8)
  1. HUMIRA 40 MG/ 0.8 ML PRE-FILLED SYRINGE [Suspect]
     Indication: RHEUMATOID ARTHRITIS
     Route: 058
     Dates: start: 20080820, end: 20090505
  2. METHOTREXATE [Concomitant]
     Indication: RHEUMATOID ARTHRITIS
     Route: 048
     Dates: start: 200605
  3. ANALGESIA [Concomitant]
     Indication: RHEUMATOID ARTHRITIS
  4. COXIB [Concomitant]
     Indication: RHEUMATOID ARTHRITIS
  5. PREDNISOLONE [Concomitant]
     Indication: RHEUMATOID ARTHRITIS
     Route: 048
  6. DECORTIN [Concomitant]
     Indication: RHEUMATOID ARTHRITIS
     Dosage: 7.5 mg daily
     Route: 048
     Dates: start: 2009
  7. KATADOLON [Concomitant]
     Indication: RHEUMATOID ARTHRITIS
     Dosage: 400 mg daily
     Route: 048
     Dates: start: 200908
  8. NOVAMINSULFON [Concomitant]
     Indication: RHEUMATOID ARTHRITIS
     Route: 048
     Dates: start: 200703

REACTIONS (1)
  - Psoriasis [Recovered/Resolved]
